FAERS Safety Report 20535398 (Version 1)
Quarter: 2022Q1

REPORT INFORMATION
  Report Type: Spontaneous
  Country: CN (occurrence: CN)
  Receive Date: 20220302
  Receipt Date: 20220302
  Transmission Date: 20220423
  Serious: Yes (Hospitalization, Other)
  Sender: FDA-Public Use
  Company Number: CN-BAYER-2021-207013

PATIENT
  Age: 62 Year
  Sex: Female
  Weight: 55 kg

DRUGS (2)
  1. XARELTO [Suspect]
     Active Substance: RIVAROXABAN
     Indication: Pulmonary embolism
     Dosage: 20 MG, QD
     Route: 048
     Dates: start: 20210617, end: 20210818
  2. VITAMIN K1 [Concomitant]
     Active Substance: PHYTONADIONE
     Dosage: UNK
     Route: 030
     Dates: start: 20210818

REACTIONS (6)
  - Pericardial effusion [Unknown]
  - Platelet count decreased [Recovering/Resolving]
  - Coagulation time prolonged [Recovering/Resolving]
  - Inappropriate schedule of product administration [Unknown]
  - Product prescribing issue [Unknown]
  - Incorrect dose administered [Unknown]

NARRATIVE: CASE EVENT DATE: 20210617
